FAERS Safety Report 5391961-5 (Version None)
Quarter: 2007Q3

REPORT INFORMATION
  Report Type: 
  Country: None (occurrence: None)
  Receive Date: 20070720
  Receipt Date: 20070713
  Transmission Date: 20080115
  Serious: Yes (Other)
  Sender: FDA-Public Use
  Company Number: PHBS2007BR11917

PATIENT
  Age: 71 Year
  Sex: Female
  Weight: 60 kg

DRUGS (5)
  1. TRILEPTAL [Suspect]
     Dosage: 300 MG/DAY
     Route: 048
     Dates: start: 20070604, end: 20070711
  2. RIVOTRIL [Concomitant]
     Dosage: 1 TABLET/DAY
     Route: 048
  3. ALENDRONATE SODIUM [Concomitant]
     Indication: OSTEOPOROSIS
     Dosage: 1 TABLET/DAY
     Route: 048
  4. CRESTOR [Concomitant]
     Indication: BLOOD CHOLESTEROL INCREASED
     Dosage: 1 TABLET/DAY
     Route: 048
  5. CALCIUM CHLORIDE [Concomitant]

REACTIONS (8)
  - CONDITION AGGRAVATED [None]
  - CRYING [None]
  - FEELING ABNORMAL [None]
  - HEADACHE [None]
  - INSOMNIA [None]
  - MEMORY IMPAIRMENT [None]
  - NERVOUSNESS [None]
  - SEDATION [None]
